FAERS Safety Report 16676799 (Version 4)
Quarter: 2021Q3

REPORT INFORMATION
  Report Type: Spontaneous
  Country: JP (occurrence: JP)
  Receive Date: 20190807
  Receipt Date: 20210716
  Transmission Date: 20211014
  Serious: Yes (Death, Life-Threatening, Hospitalization, Disabling, Other)
  Sender: FDA-Public Use
  Company Number: JP-009507513-1907JPN003874J

PATIENT
  Age: 67 Year
  Sex: Male
  Weight: 56 kg

DRUGS (7)
  1. KEYTRUDA [Suspect]
     Active Substance: PEMBROLIZUMAB
     Indication: LUNG ADENOCARCINOMA STAGE IV
     Dosage: 200 MILLIGRAM, Q3W
     Route: 041
     Dates: start: 20190222, end: 20190607
  2. DOCETAXEL. [Suspect]
     Active Substance: DOCETAXEL
     Indication: MALIGNANT NEOPLASM PROGRESSION
     Dosage: UNK
     Route: 065
     Dates: start: 20190709
  3. CISPLATIN. [Suspect]
     Active Substance: CISPLATIN
     Indication: LUNG ADENOCARCINOMA STAGE IV
     Dosage: UNK UNK, Q3W
     Route: 041
     Dates: start: 20190222, end: 20190426
  4. ONETAXOTERE [Suspect]
     Active Substance: DOCETAXEL
     Indication: LUNG ADENOCARCINOMA STAGE IV
     Dosage: 96 MILLIGRAM
     Route: 041
     Dates: start: 20190709, end: 20190709
  5. ALIMTA [Suspect]
     Active Substance: PEMETREXED DISODIUM
     Indication: LUNG ADENOCARCINOMA STAGE IV
     Dosage: UNK UNK, Q3W
     Route: 041
     Dates: start: 20190222, end: 20190607
  6. RAMUCIRUMAB [Suspect]
     Active Substance: RAMUCIRUMAB
     Indication: MALIGNANT NEOPLASM PROGRESSION
     Dosage: UNK
     Route: 065
     Dates: start: 20190709
  7. CYRAMZA [Suspect]
     Active Substance: RAMUCIRUMAB
     Indication: LUNG ADENOCARCINOMA STAGE IV
     Dosage: 590 MILLIGRAM
     Route: 041
     Dates: start: 20190709, end: 20190709

REACTIONS (7)
  - Gastrointestinal perforation [Fatal]
  - Abdominal discomfort [Unknown]
  - Colitis ulcerative [Fatal]
  - Malignant neoplasm progression [Unknown]
  - Pain [Unknown]
  - Peritonitis [Fatal]
  - Ileus [Fatal]

NARRATIVE: CASE EVENT DATE: 20190228
